FAERS Safety Report 6169808-9 (Version None)
Quarter: 2009Q2

REPORT INFORMATION
  Report Type: 
  Country: None (occurrence: None)
  Receive Date: 20090428
  Receipt Date: 20081111
  Transmission Date: 20091009
  Serious: No
  Sender: FDA-Public Use
  Company Number: US-AMGEN-US308231

PATIENT
  Sex: Female
  Weight: 69 kg

DRUGS (11)
  1. SENSIPAR [Suspect]
     Indication: HYPERPARATHYROIDISM SECONDARY
     Route: 048
     Dates: start: 20050503
  2. ARANESP [Concomitant]
     Route: 058
  3. COLACE [Concomitant]
     Route: 065
  4. LIPITOR [Concomitant]
     Route: 065
  5. ATIVAN [Concomitant]
     Route: 065
  6. FERROUS SULFATE TAB [Concomitant]
     Route: 065
  7. NORVASC [Concomitant]
     Route: 065
  8. FISH OIL [Concomitant]
     Route: 065
  9. IBUPROFEN [Concomitant]
     Route: 065
  10. ALBUTEROL [Concomitant]
     Route: 065
  11. RENAGEL [Concomitant]
     Route: 065

REACTIONS (3)
  - ABDOMINAL DISCOMFORT [None]
  - FEELING ABNORMAL [None]
  - MALAISE [None]
